FAERS Safety Report 4685261-6 (Version None)
Quarter: 2005Q2

REPORT INFORMATION
  Report Type: 
  Country: None (occurrence: None)
  Receive Date: 20050608
  Receipt Date: 20050520
  Transmission Date: 20051028
  Serious: Yes (Hospitalization, Disabling, Other)
  Sender: FDA-Public Use
  Company Number: PHEH2005US05786

PATIENT
  Age: 62 Year
  Sex: Female

DRUGS (5)
  1. TEGRETOL-XR [Suspect]
     Indication: CONVULSION
     Dosage: 200 MG, TID
     Route: 048
     Dates: start: 19970101
  2. TOPROL-XL [Concomitant]
     Dosage: 50 MG, QD
  3. CHLORPHENIRAMINE MALEATE [Concomitant]
     Indication: HYPERSENSITIVITY
     Dosage: UNK, QHS
  4. DIAZEPAM [Concomitant]
     Dosage: 2 MG, PRN
  5. ASPIRIN [Concomitant]
     Dosage: 162 MG, QD

REACTIONS (10)
  - ABASIA [None]
  - APLASTIC ANAEMIA [None]
  - ASTHENIA [None]
  - DIZZINESS [None]
  - HYPOAESTHESIA [None]
  - MEAN CELL HAEMOGLOBIN CONCENTRATION DECREASED [None]
  - PARAESTHESIA [None]
  - ROAD TRAFFIC ACCIDENT [None]
  - TRAUMATIC HAEMORRHAGE [None]
  - WHITE BLOOD CELL COUNT ABNORMAL [None]
